FAERS Safety Report 4895518-1 (Version None)
Quarter: 2006Q1

REPORT INFORMATION
  Report Type: 
  Country: None (occurrence: None)
  Receive Date: 20060125
  Receipt Date: 20040722
  Transmission Date: 20060701
  Serious: Yes (Life-Threatening)
  Sender: FDA-Public Use
  Company Number: FR_040704492

PATIENT
  Age: 24 Year
  Sex: Female
  Weight: 48 kg

DRUGS (6)
  1. VANCOMYCIN [Suspect]
     Indication: PROPHYLAXIS
     Dosage: 1 G/1 OTHER
     Dates: start: 20040524, end: 20040525
  2. FLAGYL [Concomitant]
  3. PROPOFOL [Concomitant]
  4. SUFFENTA (SUFENTANIL CITRATE) [Concomitant]
  5. MIDAZOLAM HCL [Concomitant]
  6. NIMBEX (CISATRACIRIUM BESILATE) [Concomitant]

REACTIONS (1)
  - ANAPHYLACTIC SHOCK [None]
